FAERS Safety Report 9310304 (Version 1)
Quarter: 2013Q2

REPORT INFORMATION
  Report Type: Spontaneous
  Country: BR (occurrence: BR)
  Receive Date: 20130527
  Receipt Date: 20130527
  Transmission Date: 20140414
  Serious: Yes (Other)
  Sender: FDA-Public Use
  Company Number: BR-PFIZER INC-2013160358

PATIENT
  Sex: Female

DRUGS (1)
  1. DOSTINEX [Suspect]
     Indication: BRAIN NEOPLASM
     Dosage: UNK
     Route: 048
     Dates: start: 1995

REACTIONS (1)
  - Neoplasm malignant [Not Recovered/Not Resolved]
